FAERS Safety Report 8472306-0 (Version None)
Quarter: 2012Q2

REPORT INFORMATION
  Report Type: 
  Country: None (occurrence: None)
  Receive Date: 20120627
  Receipt Date: 20120619
  Transmission Date: 20120825
  Serious: No
  Sender: FDA-Public Use
  Company Number: US-BAYER-2012-056241

PATIENT
  Age: 59 Year
  Sex: Female

DRUGS (1)
  1. GADAVIST [Suspect]
     Indication: ANGIOGRAM
     Dosage: 12 ML, ONCE
     Dates: start: 20120605, end: 20120605

REACTIONS (8)
  - ORAL PRURITUS [None]
  - SALIVARY HYPERSECRETION [None]
  - OCULAR HYPERAEMIA [None]
  - NAUSEA [None]
  - PRURITUS [None]
  - ABNORMAL SENSATION IN EYE [None]
  - LACRIMATION INCREASED [None]
  - ERYTHEMA [None]
